FAERS Safety Report 5904810-0 (Version None)
Quarter: 2008Q4

REPORT INFORMATION
  Report Type: 
  Country: None (occurrence: None)
  Receive Date: 20081001
  Receipt Date: 20080916
  Transmission Date: 20090506
  Serious: Yes (Hospitalization)
  Sender: FDA-Public Use
  Company Number: GB-MERCK-0809GBR00084

PATIENT
  Age: 8 Month
  Sex: Male

DRUGS (3)
  1. TIMOPTIC [Suspect]
     Route: 065
  2. PROPRANOLOL HYDROCHLORIDE [Suspect]
     Route: 065
  3. SODIUM CHLORIDE [Concomitant]
     Indication: NASAL CONGESTION
     Route: 065

REACTIONS (8)
  - ACCIDENTAL EXPOSURE [None]
  - DRUG INTERACTION [None]
  - HEART RATE DECREASED [None]
  - HYPOTONIA [None]
  - LETHARGY [None]
  - METABOLIC ACIDOSIS [None]
  - MIOSIS [None]
  - RESPIRATORY RATE DECREASED [None]
